FAERS Safety Report 6396241-7 (Version None)
Quarter: 2009Q4

REPORT INFORMATION
  Report Type: 
  Country: None (occurrence: None)
  Receive Date: 20091012
  Receipt Date: 20090929
  Transmission Date: 20100525
  Serious: Yes (Hospitalization)
  Sender: FDA-Public Use
  Company Number: DE-BIOGENIDEC-2009BI026304

PATIENT
  Age: 0 Day
  Sex: Female

DRUGS (1)
  1. TYSABRI [Suspect]
     Indication: DRUG EXPOSURE DURING PREGNANCY
     Dosage: 2ND OR 3RD GESTATION WEEK
     Route: 064
     Dates: start: 20081201, end: 20090111

REACTIONS (2)
  - HYPOGLYCAEMIA NEONATAL [None]
  - NEONATAL TACHYPNOEA [None]
